FAERS Safety Report 8139661-2 (Version None)
Quarter: 2012Q1

REPORT INFORMATION
  Report Type: 
  Country: None (occurrence: None)
  Receive Date: 20120215
  Receipt Date: 20120213
  Transmission Date: 20120608
  Serious: Yes (Death)
  Sender: FDA-Public Use
  Company Number: ES-PFIZER INC-2011268724

PATIENT
  Age: 69 Year
  Sex: Male

DRUGS (7)
  1. ALLOPURINOL [Concomitant]
  2. ALDACTONE [Concomitant]
  3. SUTENT [Suspect]
     Indication: GASTROINTESTINAL STROMAL TUMOUR
     Dosage: 60 MG, 1X/DAY
     Route: 048
     Dates: start: 20110506, end: 20110524
  4. DOMPERIDONE [Concomitant]
  5. FUROSEMIDE [Concomitant]
  6. BEMIPARIN [Concomitant]
  7. DILTIAZEM [Concomitant]

REACTIONS (2)
  - ENCEPHALOPATHY [None]
  - HYPERBILIRUBINAEMIA [None]
